FAERS Safety Report 5822429-7 (Version None)
Quarter: 2008Q3

REPORT INFORMATION
  Report Type: 
  Country: None (occurrence: None)
  Receive Date: 20080725
  Receipt Date: 20080317
  Transmission Date: 20090109
  Serious: No
  Sender: FDA-Public Use
  Company Number: US-AMGEN-KDL267549

PATIENT
  Sex: Male

DRUGS (5)
  1. PROCRIT [Suspect]
     Indication: ANAEMIA OF MALIGNANT DISEASE
  2. GLIPIZIDE [Concomitant]
  3. REVLIMID [Concomitant]
  4. PINDOLOL [Concomitant]
  5. BLOOD CELLS, PACKED HUMAN [Concomitant]

REACTIONS (4)
  - ASTHENIA [None]
  - BLOOD COUNT ABNORMAL [None]
  - HAEMOGLOBIN DECREASED [None]
  - PROTEIN URINE PRESENT [None]
